FAERS Safety Report 6936946-X (Version None)
Quarter: 2010Q3

REPORT INFORMATION
  Report Type: 
  Country: None (occurrence: None)
  Receive Date: 20100818
  Receipt Date: 20100806
  Transmission Date: 20110219
  Serious: Yes (Hospitalization)
  Sender: FDA-Public Use
  Company Number: TCI2010A02531

PATIENT
  Age: 58 Year
  Sex: Female

DRUGS (15)
  1. ACTOS [Suspect]
     Indication: DIABETES MELLITUS
     Dosage: 7.5 MG (7.5 MG, 1 IN 1 D) PER ORAL
     Route: 048
     Dates: start: 20100607, end: 20100607
  2. BASEN OD TABLETS 0.2 (VOGLIBOSE) [Suspect]
     Indication: DIABETES MELLITUS
     Dosage: 0.6 MG (0.2 MG,3 IN 1 D) 1) PER ORAL
     Route: 048
     Dates: start: 20100607, end: 20100624
  3. LANSOPRAZOLE [Suspect]
     Dosage: 15 MG (15 MG,1 IN 1 D) 1) PER ORAL
     Route: 048
     Dates: start: 20100618, end: 20100625
  4. METFORMIN HCL [Suspect]
     Dosage: 750 MG (250 MG, 3 IN 1 D), PER ORAL
     Route: 048
     Dates: start: 20100618, end: 20100624
  5. METFORMIN HCL [Suspect]
     Dosage: 750 MG (250 MG, 3 IN 1 D), PER ORAL
     Route: 048
     Dates: start: 20100625, end: 20100625
  6. INDAPAMIDE [Concomitant]
     Indication: HYPERTENSION
     Dosage: 1 TAB. (1 TAB., 1 D),  PER ORAL
     Route: 048
     Dates: start: 20100612, end: 20100624
  7. GASMOTIN (MOSAPRIDE CITRATE) [Suspect]
     Dosage: 15 MG (5 MG,3 IN 1 D), PER ORAL, 5 MG (5 MG,1 IN 1 D) PER ORAL
     Route: 048
     Dates: start: 20100618, end: 20100624
  8. GASMOTIN (MOSAPRIDE CITRATE) [Suspect]
     Dosage: 15 MG (5 MG,3 IN 1 D), PER ORAL, 5 MG (5 MG,1 IN 1 D) PER ORAL
     Route: 048
     Dates: start: 20100625, end: 20100625
  9. OPALMON (LIMAPROST) [Concomitant]
  10. LOXONIN (LOXOPROFEN SODIUM) [Concomitant]
  11. MUCOSTA (REBAMIPIDE) [Concomitant]
  12. DIOVAN [Concomitant]
  13. LIPITOR [Concomitant]
  14. MAGLAX (MAGNESIUM OXIDE) [Concomitant]
  15. HUMALOG MIX 50 (INSULIN LISPRO) [Concomitant]

REACTIONS (2)
  - PYREXIA [None]
  - RASH [None]
